FAERS Safety Report 22390433 (Version 2)
Quarter: 2023Q2

REPORT INFORMATION
  Report Type: Spontaneous
  Country: IT (occurrence: IT)
  Receive Date: 20230531
  Receipt Date: 20230601
  Transmission Date: 20230721
  Serious: Yes (Disabling, Other)
  Sender: FDA-Public Use
  Company Number: None

PATIENT
  Age: 23 Year
  Sex: Male

DRUGS (1)
  1. ZOLOFT [Suspect]
     Active Substance: SERTRALINE HYDROCHLORIDE
     Indication: Mixed anxiety and depressive disorder
     Dosage: 25 MILLIGRAM, QD (DIV: 1/2 TAB/DAY)
     Route: 048
     Dates: start: 202012, end: 202112

REACTIONS (5)
  - Cognitive disorder [Not Recovered/Not Resolved]
  - Panic attack [Recovering/Resolving]
  - Erectile dysfunction [Not Recovered/Not Resolved]
  - Libido disorder [Not Recovered/Not Resolved]
  - Derealisation [Recovering/Resolving]

NARRATIVE: CASE EVENT DATE: 20211201
